FAERS Safety Report 9537310 (Version 1)
Quarter: 2013Q3

REPORT INFORMATION
  Report Type: Report from Study
  Country: CA (occurrence: CA)
  Receive Date: 20130919
  Receipt Date: 20130919
  Transmission Date: 20140515
  Serious: Yes (Hospitalization)
  Sender: FDA-Public Use
  Company Number: CA-JNJFOC-20130906920

PATIENT
  Age: 50 Year
  Sex: Female
  Weight: 91.4 kg

DRUGS (2)
  1. REMICADE [Suspect]
     Indication: RHEUMATOID ARTHRITIS
     Route: 042
     Dates: start: 20100312
  2. METHOTREXATE [Concomitant]
     Route: 065

REACTIONS (4)
  - Abdominal pain [Recovering/Resolving]
  - Abdominal adhesions [Recovering/Resolving]
  - Incision site complication [Recovering/Resolving]
  - Wound [Recovering/Resolving]
